FAERS Safety Report 14174468 (Version 1)
Quarter: 2017Q4

REPORT INFORMATION
  Report Type: Spontaneous
  Country: US (occurrence: US)
  Receive Date: 20171109
  Receipt Date: 20171109
  Transmission Date: 20180321
  Serious: Yes (Other)
  Sender: FDA-Public Use
  Company Number: US-PFIZER INC-2728808

PATIENT
  Age: 66 Year
  Sex: Male

DRUGS (29)
  1. PROPOFOL. [Suspect]
     Active Substance: PROPOFOL
     Indication: GENERAL ANAESTHESIA
     Dosage: 125 UG/KG/MIN
     Route: 041
  2. PROPOFOL. [Suspect]
     Active Substance: PROPOFOL
     Dosage: 75 UG/KG/MIN
  3. SELEGILINE [Concomitant]
     Active Substance: SELEGILINE
     Indication: DEPRESSION
     Dosage: UNK
  4. SENNA /00142201/ [Concomitant]
     Active Substance: SENNA LEAF
     Dosage: UNK, AS NEEDED
  5. ACETAMINOPHEN. [Concomitant]
     Active Substance: ACETAMINOPHEN
     Dosage: UNK
  6. AMANTADINE. [Concomitant]
     Active Substance: AMANTADINE HYDROCHLORIDE
     Indication: PARKINSON^S DISEASE
     Dosage: UNK
  7. ETOMIDATE. [Concomitant]
     Active Substance: ETOMIDATE
     Indication: INDUCTION OF ANAESTHESIA
     Dosage: 20 MG, UNK
     Route: 042
  8. ETOMIDATE. [Concomitant]
     Active Substance: ETOMIDATE
     Indication: GENERAL ANAESTHESIA
  9. ATORVASTATIN [Concomitant]
     Active Substance: ATORVASTATIN
     Indication: CORONARY ARTERY DISEASE
     Dosage: UNK
  10. CARBIDOPA. [Concomitant]
     Active Substance: CARBIDOPA
     Indication: PARKINSON^S DISEASE
     Dosage: UNK
  11. MIDAZOLAM [Concomitant]
     Active Substance: MIDAZOLAM HYDROCHLORIDE
     Dosage: 2 MG, UNK
     Route: 042
  12. SEVOFLURANE. [Concomitant]
     Active Substance: SEVOFLURANE
     Indication: MAINTENANCE OF ANAESTHESIA
     Dosage: 2 %, UNK
     Route: 055
  13. VECURONIUM [Concomitant]
     Active Substance: VECURONIUM BROMIDE
     Indication: HYPOTONIA
     Dosage: 7 MG, UNK
  14. MELOXICAM. [Concomitant]
     Active Substance: MELOXICAM
  15. ASPIRIN /00002701/ [Concomitant]
     Active Substance: ASPIRIN
  16. CLOPIDOGREL [Concomitant]
     Active Substance: CLOPIDOGREL BISULFATE
  17. CEFAZOLIN [Concomitant]
     Active Substance: CEFAZOLIN
     Indication: ANTIBIOTIC PROPHYLAXIS
     Dosage: 2 G, UNK
  18. SELEGILINE [Concomitant]
     Active Substance: SELEGILINE
     Indication: PARKINSON^S DISEASE
  19. TRAMADOL. [Concomitant]
     Active Substance: TRAMADOL
     Dosage: UNK
  20. FENTANYL. [Concomitant]
     Active Substance: FENTANYL
     Indication: INDUCTION OF ANAESTHESIA
     Dosage: 250 UG, UNK
     Route: 042
  21. MIRTAZAPINE. [Concomitant]
     Active Substance: MIRTAZAPINE
     Indication: DEPRESSION
     Dosage: UNK
  22. FENTANYL. [Concomitant]
     Active Substance: FENTANYL
     Indication: GENERAL ANAESTHESIA
  23. LANSOPRAZOLE. [Concomitant]
     Active Substance: LANSOPRAZOLE
     Dosage: UNK
  24. LEVODOPA [Concomitant]
     Active Substance: LEVODOPA
     Indication: PARKINSON^S DISEASE
     Dosage: UNK
  25. PROPOFOL. [Suspect]
     Active Substance: PROPOFOL
     Indication: INDUCTION OF ANAESTHESIA
     Dosage: 80 MG, UNK
     Route: 042
  26. ENTACAPONE. [Concomitant]
     Active Substance: ENTACAPONE
     Indication: PARKINSON^S DISEASE
     Dosage: UNK
  27. HYDROMORPHONE [Concomitant]
     Active Substance: HYDROMORPHONE
     Indication: ANAESTHESIA
     Dosage: 4.2 MG, UNK (FREQ: TOTAL /IN DIVIDED DOSES)
     Route: 042
  28. SEVOFLURANE. [Concomitant]
     Active Substance: SEVOFLURANE
     Dosage: 0.6 %, UNK
     Route: 055
  29. VALSARTAN. [Concomitant]
     Active Substance: VALSARTAN
     Indication: HYPERTENSION
     Dosage: NOT REPORTED

REACTIONS (1)
  - Diabetes insipidus [Recovered/Resolved]
